FAERS Safety Report 7341700-3 (Version None)
Quarter: 2011Q1

REPORT INFORMATION
  Report Type: 
  Country: None (occurrence: None)
  Receive Date: 20110309
  Receipt Date: 20091114
  Transmission Date: 20110831
  Serious: Yes (Hospitalization, Other)
  Sender: FDA-Public Use
  Company Number: US-BAYER-200939453NA

PATIENT
  Sex: Male
  Weight: 133.97 kg

DRUGS (24)
  1. ENALAPRIL MALEATE [Concomitant]
     Indication: HYPERTENSION
     Route: 048
  2. VANCOMYCIN [Concomitant]
     Dosage: 2.75 G, UNK
     Dates: start: 20050810
  3. NOREPINEPHRINE BITARTRATE [Concomitant]
     Dosage: 4 MG, UNK
     Dates: start: 20050810
  4. MAGNESIUM SULFATE [Concomitant]
     Dosage: 5 G, UNK
     Dates: start: 20050810
  5. ETOMIDATE [Concomitant]
     Dosage: 20 MG, UNK
     Dates: start: 20050810
  6. TRASYLOL [Suspect]
     Indication: CORONARY ARTERY BYPASS
     Dosage: 400 ML, THEN 50 ML/HR THEREAFTER
     Route: 042
     Dates: start: 20050810, end: 20050810
  7. LEVOTHYROXINE [Concomitant]
     Indication: THYROID DISORDER
     Route: 048
  8. MECLIZINE [Concomitant]
     Dosage: 25 MG, UNK
     Dates: start: 20050810
  9. DILTIAZEM [Concomitant]
     Indication: CARDIAC DISORDER
     Route: 048
  10. SODIUM BICARBONATE [Concomitant]
     Dosage: 50 MEQ, UNK
     Dates: start: 20050810
  11. MIDAZOLAM [Concomitant]
     Dosage: 2 MG, UNK
     Dates: start: 20050810
  12. VECURONIUM BROMIDE [Concomitant]
     Dosage: 40 MG, UNK
     Dates: start: 20050810
  13. CARDIOPLEGIA [Concomitant]
     Dosage: 465 ML, UNK
     Dates: start: 20050810
  14. ALBUMIN (HUMAN) [Concomitant]
     Dosage: 12 G, UNK
     Route: 042
     Dates: start: 20050810
  15. PROTAMINE SULFATE [Concomitant]
     Dosage: 350 MG, UNK
     Route: 042
     Dates: start: 20050810
  16. CLONAZEPAM [Concomitant]
     Route: 048
  17. CALCIUM [Concomitant]
     Dosage: 2 G, UNK
     Dates: start: 20050810
  18. RED BLOOD CELLS [Concomitant]
     Dosage: 8 U, UNK
     Dates: start: 20050810
  19. SUCRALFATE [Concomitant]
     Dosage: 1 G, UNK
     Dates: start: 20050810
  20. ALLOPURINOL [Concomitant]
     Route: 048
  21. METOPROLOL [Concomitant]
     Route: 048
  22. LASIX [Concomitant]
     Indication: FLUID RETENTION
     Route: 048
  23. PROPOFOL [Concomitant]
     Dosage: 1500 MG, UNK
     Dates: start: 20050810
  24. UNCODEABLE ^UNCLASSIFIABLE^ [Concomitant]
     Dosage: 1 G, UNK
     Dates: start: 20050810

REACTIONS (10)
  - PAIN [None]
  - UNEVALUABLE EVENT [None]
  - FEAR [None]
  - CARDIAC DISORDER [None]
  - MYOCARDIAL INFARCTION [None]
  - STRESS [None]
  - ANXIETY [None]
  - ARRHYTHMIA [None]
  - EMOTIONAL DISTRESS [None]
  - INJURY [None]
